FAERS Safety Report 9794670 (Version 2)
Quarter: 2014Q1

REPORT INFORMATION
  Report Type: Report from Study
  Country: CA (occurrence: CA)
  Receive Date: 20140102
  Receipt Date: 20140102
  Transmission Date: 20141002
  Serious: Yes (Other)
  Sender: FDA-Public Use
  Company Number: CA-ABBVIE-13P-028-1100528-00

PATIENT
  Age: 26 Year
  Sex: Female
  Weight: 52 kg

DRUGS (4)
  1. KALETRA 200/50 [Suspect]
     Indication: HIV INFECTION
     Dosage: DAILY DOSE: 800/200 MG (200/50MG 4 TABS)
     Route: 048
     Dates: start: 200812
  2. DICLECTIN [Suspect]
     Indication: NAUSEA
     Route: 048
  3. DICLECTIN [Suspect]
     Indication: VOMITING
  4. KIVEXA [Concomitant]
     Indication: HIV INFECTION
     Dosage: 600/300MG
     Route: 048

REACTIONS (4)
  - Cervix dystocia [Unknown]
  - Drug effect decreased [Unknown]
  - Nausea [Recovering/Resolving]
  - Vomiting [Recovering/Resolving]
